FAERS Safety Report 8995941 (Version 1)
Quarter: 2013Q1

REPORT INFORMATION
  Report Type: Spontaneous
  Country: US (occurrence: US)
  Receive Date: 20130103
  Receipt Date: 20130103
  Transmission Date: 20140127
  Serious: No
  Sender: FDA-Public Use
  Company Number: US-ABBOTT-12P-163-0944730-00

PATIENT
  Age: 50 Year
  Sex: Female

DRUGS (2)
  1. SYNTHROID [Suspect]
     Indication: HYPOTHYROIDISM
     Dates: start: 2010, end: 201204
  2. SYNTHROID [Suspect]
     Dates: start: 201204

REACTIONS (4)
  - Skin disorder [Unknown]
  - Dry skin [Unknown]
  - Blood thyroid stimulating hormone increased [Unknown]
  - Pruritus [Unknown]
